FAERS Safety Report 13473157 (Version 1)
Quarter: 2017Q2

REPORT INFORMATION
  Report Type: Other
  Country: GB (occurrence: KR)
  Receive Date: 20170424
  Receipt Date: 20170424
  Transmission Date: 20170830
  Serious: Yes (Other)
  Sender: FDA-Public Use
  Company Number: KR-CLARIS PHARMASERVICES-1065774

PATIENT
  Age: 3 Year
  Sex: Female

DRUGS (2)
  1. METRONIDAZOLE. [Suspect]
     Active Substance: METRONIDAZOLE
     Indication: CLOSTRIDIUM DIFFICILE INFECTION
  2. BUSUFAN [Suspect]
     Active Substance: BUSULFAN

REACTIONS (1)
  - Drug interaction [None]
